FAERS Safety Report 4543222-1 (Version None)
Quarter: 2005Q1

REPORT INFORMATION
  Report Type: 
  Country: None (occurrence: None)
  Receive Date: 20050103
  Receipt Date: 20041222
  Transmission Date: 20050727
  Serious: Yes (Hospitalization)
  Sender: FDA-Public Use
  Company Number: JP-BRISTOL-MYERS SQUIBB COMPANY-12807376

PATIENT
  Age: 78 Year
  Sex: Female

DRUGS (8)
  1. GATIFLO TABS 100 MG [Suspect]
     Indication: BACTERIAL INFECTION
     Route: 048
     Dates: start: 20041218, end: 20041221
  2. MAGNESIUM OXIDE [Concomitant]
     Dates: start: 20041120
  3. BIOFERMIN [Concomitant]
     Route: 048
     Dates: start: 20041120
  4. PURSENNID [Concomitant]
     Route: 048
     Dates: start: 20041120
  5. DAONIL [Concomitant]
     Route: 048
     Dates: start: 20041220, end: 20041222
  6. LASIX [Concomitant]
     Route: 048
     Dates: start: 20041120
  7. PARIET [Concomitant]
     Route: 048
     Dates: start: 20041120
  8. INSULIN [Concomitant]
     Dosage: ISCONTINUED ON 20-DEC-2004 AND RESTARTED ON 22-DEC-2004
     Dates: start: 20041120

REACTIONS (1)
  - HYPERGLYCAEMIA [None]
